FAERS Safety Report 5522968-2 (Version None)
Quarter: 2007Q4

REPORT INFORMATION
  Report Type: 
  Country: None (occurrence: None)
  Receive Date: 20071121
  Receipt Date: 20071113
  Transmission Date: 20080405
  Serious: Yes (Other)
  Sender: FDA-Public Use
  Company Number: PHEH2007US14888

PATIENT
  Age: 80 Year
  Sex: Male
  Weight: 78.004 kg

DRUGS (6)
  1. EXJADE [Suspect]
     Dosage: 2000 MG, QD
     Route: 048
  2. DECITABINE [Concomitant]
     Dosage: 50 MG, UNK
  3. MONTELUKAST SODIUM [Concomitant]
     Dosage: 10 MG, UNK
     Route: 048
  4. PREDNISONE TAB [Concomitant]
     Dosage: 10 MG, UNK
  5. PROSCAR [Concomitant]
     Dosage: 5 MG, UNK
  6. FOLIC ACID [Concomitant]
     Dosage: 1 MG, UNK

REACTIONS (1)
  - MACULAR DEGENERATION [None]
